FAERS Safety Report 8264947-0 (Version None)
Quarter: 2012Q2

REPORT INFORMATION
  Report Type: 
  Country: None (occurrence: None)
  Receive Date: 20120403
  Receipt Date: 20120321
  Transmission Date: 20120825
  Serious: Yes (Other)
  Sender: FDA-Public Use
  Company Number: NSR_00517_2012

PATIENT
  Age: 24 Month
  Sex: Male
  Weight: 12.5 kg

DRUGS (4)
  1. GRANISETRON [Concomitant]
  2. TRAMADOL HCL [Suspect]
     Indication: ANALGESIC THERAPY
     Dosage: 0.75 MG/KG PER HOUR,  INTRAVENOUS DRIP
     Route: 041
  3. SUFENTANIL CITRATE [Suspect]
     Indication: ANAESTHESIA
     Dosage: 2 UG 1X
  4. AMIDE [Concomitant]

REACTIONS (7)
  - MUSCULOSKELETAL STIFFNESS [None]
  - AGITATION [None]
  - CYANOSIS [None]
  - TRISMUS [None]
  - OVERDOSE [None]
  - HEART RATE DECREASED [None]
  - CONVULSION [None]
